FAERS Safety Report 13742314 (Version 1)
Quarter: 2017Q3

REPORT INFORMATION
  Report Type: Other
  Country: US (occurrence: US)
  Receive Date: 20170711
  Receipt Date: 20170711
  Transmission Date: 20171127
  Serious: Yes (Hospitalization)
  Sender: FDA-Public Use
  Company Number: US-TARGET-2023211

PATIENT
  Sex: Male

DRUGS (1)
  1. 3% HYDROGEN PEROXIDE [Suspect]
     Active Substance: HYDROGEN PEROXIDE
     Indication: OFF LABEL USE
     Route: 050
     Dates: start: 20170614, end: 20170614

REACTIONS (6)
  - Burns first degree [None]
  - Burning sensation [Recovering/Resolving]
  - Impaired work ability [None]
  - Chemical burn [None]
  - Off label use [None]
  - Gait disturbance [None]

NARRATIVE: CASE EVENT DATE: 20170614
